FAERS Safety Report 23974187 (Version 1)
Quarter: 2024Q2

REPORT INFORMATION
  Report Type: Spontaneous
  Country: DE (occurrence: DE)
  Receive Date: 20240614
  Receipt Date: 20240614
  Transmission Date: 20240716
  Serious: Yes (Other)
  Sender: FDA-Public Use
  Company Number: None

PATIENT
  Age: 57 Year
  Sex: Female
  Weight: 52.7 kg

DRUGS (47)
  1. ZOLEDRONIC ACID [Suspect]
     Active Substance: ZOLEDRONIC ACID
     Indication: Metastases to bone
     Dosage: 4 MG
     Dates: start: 20201216
  2. ZOLEDRONIC ACID [Suspect]
     Active Substance: ZOLEDRONIC ACID
     Dosage: UNK UNK, Q4W,Q4WEEKS, 2ND DOSE ON 16/DEC/2020 AND 3RD DOSE ON 13/JAN/2021. DATE OF LAST DOSE (4 MG)
     Dates: start: 20201118
  3. TRASTUZUMAB [Suspect]
     Active Substance: TRASTUZUMAB
     Indication: Breast cancer
     Dosage: 336 MG,336 MG (DATE OF LAST DOSE (336 MG) APPLICATION PRIOR EVENT: 10/DEC/2020 DATE OF LAST DOSE (33
     Route: 042
     Dates: start: 20201210, end: 20210328
  4. TRASTUZUMAB [Suspect]
     Active Substance: TRASTUZUMAB
     Dosage: 336 MG,336 MG (DATE OF MOST RECENT DOSE PRIOR TO AE 20/JUL/2021: 326 MG)
     Route: 042
     Dates: start: 20210518, end: 20220608
  5. DOCETAXEL [Suspect]
     Active Substance: DOCETAXEL\DOCETAXEL ANHYDROUS
     Indication: Breast cancer
     Dosage: 120 MG,120 MG (DATE OF LAST DOSE (118 MG) APPLICATION PRIOR EVENT 10/DEC/2020) DATE OF LAST DOSE (11
     Dates: start: 20201118, end: 20210104
  6. PERTUZUMAB [Suspect]
     Active Substance: PERTUZUMAB
     Indication: Breast cancer
     Dosage: 420 MG,420 MG (DATE OF MOST RECENT DOSE PRIOR TO AE 20/JUL/2021: 420 MG)
     Dates: start: 20210518, end: 20220608
  7. PERTUZUMAB [Suspect]
     Active Substance: PERTUZUMAB
     Dosage: 420 MG,420 MG (DATE OF MOST RECENT DOSE PRIOR TO AE 20/JUL/2021: 420 MG)
     Dates: start: 20201210, end: 20210328
  8. VITAMIN C [Concomitant]
     Active Substance: ASCORBIC ACID
     Dosage: 200 MG, QD
     Dates: start: 20230531
  9. VITAMIN C [Concomitant]
     Active Substance: ASCORBIC ACID
     Dosage: 1000 MG, QD
     Dates: start: 20230116, end: 20230530
  10. NISITA [SODIUM BICARBONATE;SODIUM CHLORIDE] [Concomitant]
     Dosage: UNK UNK, QD,9999.99 UNKNOWN, DAILY
     Dates: start: 20211103, end: 20220427
  11. SEA SALT [Concomitant]
     Active Substance: SEA SALT
     Dosage: 0.5 UNK, QD
     Route: 045
     Dates: start: 20211026
  12. POLYETHYLENE GLYCOLS [Concomitant]
     Active Substance: POLYETHYLENE GLYCOLS
     Dosage: 13.12 G, QOD
     Dates: start: 20230620, end: 20230624
  13. POLYETHYLENE GLYCOLS [Concomitant]
     Active Substance: POLYETHYLENE GLYCOLS
     Dosage: 13.12 G, PRN
     Dates: start: 20230530, end: 20230603
  14. POLYETHYLENE GLYCOLS [Concomitant]
     Active Substance: POLYETHYLENE GLYCOLS
     Dosage: 13.12 G, QOD
     Dates: start: 20230801, end: 20230801
  15. POLYETHYLENE GLYCOLS [Concomitant]
     Active Substance: POLYETHYLENE GLYCOLS
     Dosage: 13.12 G, PRN
     Dates: start: 20230509, end: 20230512
  16. POLYETHYLENE GLYCOLS [Concomitant]
     Active Substance: POLYETHYLENE GLYCOLS
     Dosage: 13.12 G, QOD
     Dates: start: 20230822
  17. POLYETHYLENE GLYCOLS [Concomitant]
     Active Substance: POLYETHYLENE GLYCOLS
     Dosage: 13.12 G, QOD
     Dates: start: 20230711, end: 20230715
  18. DOCONEXENT\ICOSAPENT [Concomitant]
     Active Substance: DOCONEXENT\ICOSAPENT
     Dosage: 214 MG, QD
     Dates: start: 20221216
  19. CALCIUM\CHOLECALCIFEROL [Concomitant]
     Active Substance: CALCIUM\CHOLECALCIFEROL
     Dosage: 400 IU, QD
     Route: 048
     Dates: start: 20201118
  20. CALCIUM\CHOLECALCIFEROL [Concomitant]
     Active Substance: CALCIUM\CHOLECALCIFEROL
     Dosage: UNK UNK, QD,CALCIUM 500 MG / VITAMIN D 400 IU DAILY
     Route: 048
     Dates: start: 20201118
  21. DEXAMETHASONE [Concomitant]
     Active Substance: DEXAMETHASONE
     Dosage: 32 MG
     Route: 048
     Dates: start: 20201117, end: 20210106
  22. DEXAMETHASONE [Concomitant]
     Active Substance: DEXAMETHASONE
     Dosage: 8 MG
     Dates: start: 20220930, end: 20221023
  23. DEXAMETHASONE [Concomitant]
     Active Substance: DEXAMETHASONE
     Dosage: 12 MG
     Dates: start: 20230417
  24. DEXAMETHASONE [Concomitant]
     Active Substance: DEXAMETHASONE
     Dosage: 8 MG
     Dates: end: 20220728
  25. DEXAMETHASONE [Concomitant]
     Active Substance: DEXAMETHASONE
     Dosage: 8 MG
     Dates: start: 20220728, end: 20230327
  26. GYNOMUNAL [CHOLESTEROL;HUMULUS LUPULUS;HYALURONIC ACID;TOCOPHERYL ACET [Concomitant]
     Dosage: 2.5 MG
     Route: 061
     Dates: start: 20210208, end: 20210222
  27. GRANISETRON [Concomitant]
     Active Substance: GRANISETRON
     Dosage: 1 MG,PER CYCLE
     Dates: start: 20220728, end: 20230327
  28. OMEPRAZOLE [Concomitant]
     Active Substance: DONEPEZIL HYDROCHLORIDE\OMEPRAZOLE\OMEPRAZOLE MAGNESIUM
     Dosage: 20 MG
     Route: 048
     Dates: start: 20210104, end: 20210109
  29. OMEPRAZOLE [Concomitant]
     Active Substance: DONEPEZIL HYDROCHLORIDE\OMEPRAZOLE\OMEPRAZOLE MAGNESIUM
     Dosage: 40 MG, PRN
     Dates: start: 20230123
  30. OMEPRAZOLE [Concomitant]
     Active Substance: DONEPEZIL HYDROCHLORIDE\OMEPRAZOLE\OMEPRAZOLE MAGNESIUM
     Dosage: 40 MG, QD
     Dates: start: 20230103, end: 20230109
  31. PANTOPRAZOLE [Concomitant]
     Active Substance: PANTOPRAZOLE
     Dosage: 40 MG
     Dates: start: 20221017, end: 20221023
  32. NETUPITANT\PALONOSETRON HYDROCHLORIDE [Concomitant]
     Active Substance: NETUPITANT\PALONOSETRON HYDROCHLORIDE
     Dosage: 300 MG
     Dates: start: 20230417
  33. NOVALGIN (METAMIZOLE SODIUM) [Concomitant]
     Active Substance: METAMIZOLE SODIUM
     Dosage: 500 MG
     Route: 048
     Dates: start: 20210104, end: 20210109
  34. NOVALGIN (METAMIZOLE SODIUM) [Concomitant]
     Active Substance: METAMIZOLE SODIUM
     Dosage: 500 MG
     Dates: start: 20230508
  35. BISOPROLOL [Concomitant]
     Active Substance: BISOPROLOL\BISOPROLOL FUMARATE
     Dosage: 1.25 MG, BID
     Dates: start: 20220125, end: 20221215
  36. BISOPROLOL [Concomitant]
     Active Substance: BISOPROLOL\BISOPROLOL FUMARATE
     Dosage: 2.5 MG,2.5 MG, 0.5 DAY
     Route: 048
     Dates: start: 20210709, end: 20220124
  37. BISOPROLOL [Concomitant]
     Active Substance: BISOPROLOL\BISOPROLOL FUMARATE
     Dosage: 1.25 MG
     Dates: start: 20221216
  38. ZIEXTENZO [Concomitant]
     Active Substance: PEGFILGRASTIM-BMEZ
     Dosage: UNK
  39. DIMETHINDENE MALEATE [Concomitant]
     Active Substance: DIMETHINDENE MALEATE
     Dosage: 4 MG
     Dates: start: 20201118, end: 20210104
  40. DEXAMETHASONE [Concomitant]
     Active Substance: DEXAMETHASONE
     Dosage: 8 MG
     Dates: start: 20201118, end: 20210104
  41. ELIQUIS [Concomitant]
     Active Substance: APIXABAN
     Dosage: 5 MG, 0.5 DAY
     Route: 048
     Dates: start: 20210709
  42. IBUPROFEN [Concomitant]
     Active Substance: IBUPROFEN
     Dosage: 600 MG, QD
     Dates: start: 20221025, end: 20221025
  43. IBUPROFEN [Concomitant]
     Active Substance: IBUPROFEN
     Dosage: 400 MG, PRN
     Dates: start: 20230123, end: 20230507
  44. MAGNESIUM [Concomitant]
     Active Substance: MAGNESIUM
     Dosage: 120 MG, QD
     Dates: start: 20221216
  45. MAGNESIUM [Concomitant]
     Active Substance: MAGNESIUM
     Dosage: 120 MG, TID
     Dates: start: 20220428, end: 20221215
  46. BEPANTHEN AUGEN- UND NASENSALBE [Concomitant]
     Dosage: UNK UNK, QD
     Route: 061
     Dates: start: 20210622
  47. ACETAMINOPHEN [Concomitant]
     Active Substance: ACETAMINOPHEN
     Dosage: 500 MG, QD
     Dates: start: 20221024, end: 20221024

REACTIONS (13)
  - Atrial fibrillation [Recovered/Resolved]
  - Osteochondrosis [Not Recovered/Not Resolved]
  - Vulvovaginal dryness [Recovered/Resolved]
  - Dysgeusia [Recovered/Resolved]
  - Dizziness [Not Recovered/Not Resolved]
  - Dry skin [Recovered/Resolved]
  - Back pain [Not Recovered/Not Resolved]
  - Anaemia [Recovered/Resolved]
  - Chest pain [Recovered/Resolved]
  - Left ventricular dysfunction [Recovered/Resolved]
  - Chest discomfort [Recovered/Resolved]
  - Abdominal pain upper [Recovered/Resolved]
  - Underdose [Unknown]

NARRATIVE: CASE EVENT DATE: 20210714
